FAERS Safety Report 12834055 (Version 1)
Quarter: 2016Q4

REPORT INFORMATION
  Report Type: Spontaneous
  Country: US (occurrence: US)
  Receive Date: 20161010
  Receipt Date: 20161010
  Transmission Date: 20170207
  Serious: Yes (Other)
  Sender: FDA-Public Use
  Company Number: US-AMNEAL PHARMACEUTICALS-2016AMN00644

PATIENT
  Sex: Female
  Weight: 68.27 kg

DRUGS (2)
  1. IBUPROFEN. [Suspect]
     Active Substance: IBUPROFEN
     Indication: BACK PAIN
     Dosage: 800 MG, 2X/DAY
     Route: 048
  2. IBUPROFEN. [Suspect]
     Active Substance: IBUPROFEN
     Indication: ARTHRITIS

REACTIONS (6)
  - Feeling abnormal [Unknown]
  - Postmenopausal haemorrhage [Unknown]
  - Vulvovaginal pain [Unknown]
  - Pollakiuria [Not Recovered/Not Resolved]
  - Dysuria [Unknown]
  - Renal pain [Not Recovered/Not Resolved]
